FAERS Safety Report 9346390 (Version 6)
Quarter: 2014Q1

REPORT INFORMATION
  Report Type: Report from Study
  Country: BE (occurrence: BE)
  Receive Date: 20130613
  Receipt Date: 20140218
  Transmission Date: 20141002
  Serious: Yes (Hospitalization)
  Sender: FDA-Public Use
  Company Number: BE-ROCHE-1232034

PATIENT
  Age: 49 Year
  Sex: Female
  Weight: 61.1 kg

DRUGS (5)
  1. TRASTUZUMAB EMTANSINE [Suspect]
     Indication: BREAST CANCER METASTATIC
     Dosage: DATE OF MOST RECENT DOSE (226.44 MG) OF TRASTUZUMAB EMTANSINE: 21/MAY/2013
     Route: 042
     Dates: start: 20111122
  2. EMCONCOR [Concomitant]
     Route: 065
     Dates: start: 20060106
  3. APOCARD [Concomitant]
     Route: 065
     Dates: start: 20081118
  4. ZYRTEC [Concomitant]
     Route: 065
     Dates: start: 20111122
  5. PANTOMED (BELGIUM) [Concomitant]
     Route: 065
     Dates: start: 20130601

REACTIONS (1)
  - Traumatic intracranial haemorrhage [Recovered/Resolved]
